FAERS Safety Report 14107216 (Version 1)
Quarter: 2017Q4

REPORT INFORMATION
  Report Type: Report from Study
  Country: None (occurrence: JP)
  Receive Date: 20171018
  Receipt Date: 20171018
  Transmission Date: 20180321
  Serious: Yes (Hospitalization)
  Sender: FDA-Public Use
  Company Number: JP-ABBVIE-17P-087-2117583-00

PATIENT
  Age: 70 Year
  Sex: Female
  Weight: 47.2 kg

DRUGS (10)
  1. FOLIAMIN [Concomitant]
     Active Substance: FOLIC ACID
     Indication: VITAMIN SUPPLEMENTATION
     Route: 048
     Dates: start: 20170913
  2. MAGMIT [Concomitant]
     Indication: CONSTIPATION
     Route: 048
     Dates: start: 20170902
  3. ABT-494 [Suspect]
     Active Substance: INVESTIGATIONAL PRODUCT
     Indication: RHEUMATOID ARTHRITIS
     Route: 048
     Dates: start: 20170912, end: 20171001
  4. NIZATIDINE. [Concomitant]
     Active Substance: NIZATIDINE
     Indication: GASTRIC ULCER
     Route: 048
     Dates: start: 20170902
  5. LOXONIN TAPE [Concomitant]
     Indication: RHEUMATOID ARTHRITIS
     Route: 062
     Dates: start: 201107
  6. OLMETEC [Concomitant]
     Active Substance: OLMESARTAN MEDOXOMIL
     Indication: HYPERTENSION
     Route: 048
     Dates: start: 20090307
  7. IRSOGLADINE MALEATE [Concomitant]
     Active Substance: IRSOGLADINE MALEATE
     Indication: GASTRIC ULCER
     Route: 048
     Dates: start: 20170715
  8. CALONAL [Concomitant]
     Active Substance: ACETAMINOPHEN
     Indication: RHEUMATOID ARTHRITIS
     Route: 048
     Dates: start: 20170809
  9. EPERISONE HYDROCHLORIDE [Concomitant]
     Active Substance: EPERISONE HYDROCHLORIDE
     Indication: CERVICOBRACHIAL SYNDROME
     Route: 048
     Dates: start: 20150901
  10. ECABET NA [Concomitant]
     Indication: GASTRIC ULCER
     Route: 048
     Dates: start: 20170715

REACTIONS (1)
  - Gastric ulcer haemorrhage [Not Recovered/Not Resolved]

NARRATIVE: CASE EVENT DATE: 20170929
